FAERS Safety Report 25093501 (Version 1)
Quarter: 2025Q1

REPORT INFORMATION
  Report Type: Spontaneous
  Country: US (occurrence: US)
  Receive Date: 20250319
  Receipt Date: 20250319
  Transmission Date: 20250409
  Serious: Yes (Hospitalization)
  Sender: ROCHE
  Company Number: US-ROCHE-10000228585

PATIENT
  Sex: Female

DRUGS (2)
  1. TAMIFLU [Suspect]
     Active Substance: OSELTAMIVIR PHOSPHATE
     Indication: Influenza
     Route: 065
  2. DAYBUE [Concomitant]
     Active Substance: TROFINETIDE
     Indication: Rett syndrome
     Dosage: BID, #2
     Route: 048

REACTIONS (3)
  - Pharyngitis streptococcal [Unknown]
  - Diarrhoea [Unknown]
  - Illness [Unknown]
